FAERS Safety Report 6247005-6 (Version None)
Quarter: 2009Q2

REPORT INFORMATION
  Report Type: 
  Country: None (occurrence: None)
  Receive Date: 20090626
  Receipt Date: 20090617
  Transmission Date: 20091009
  Serious: Yes (Other)
  Sender: FDA-Public Use
  Company Number: IT-AMGEN-UK346998

PATIENT
  Sex: Male
  Weight: 82.8 kg

DRUGS (4)
  1. PANITUMUMAB [Suspect]
     Indication: COLORECTAL CANCER
     Route: 042
     Dates: end: 20081222
  2. FOLINIC ACID [Concomitant]
     Route: 042
     Dates: start: 20081116, end: 20081117
  3. FLUOROURACIL [Concomitant]
     Route: 042
     Dates: start: 20081116, end: 20081117
  4. OXALIPLATIN [Concomitant]
     Route: 042
     Dates: start: 20081116, end: 20081117

REACTIONS (3)
  - FOLLICULITIS [None]
  - MALIGNANT NEOPLASM PROGRESSION [None]
  - XEROSIS [None]
